FAERS Safety Report 4886699-4 (Version None)
Quarter: 2006Q1

REPORT INFORMATION
  Report Type: 
  Country: None (occurrence: None)
  Receive Date: 20060120
  Receipt Date: 20050824
  Transmission Date: 20060701
  Serious: Yes (Hospitalization, Other)
  Sender: FDA-Public Use
  Company Number: PHEH2005US09432

PATIENT
  Age: 81 Year
  Sex: Male
  Weight: 63.945 kg

DRUGS (7)
  1. ZOMETA [Suspect]
     Indication: BONE NEOPLASM MALIGNANT
     Dosage: 4 MG, Q 3 MONTHS
     Route: 042
     Dates: start: 20050405
  2. LUPRON [Concomitant]
     Indication: PROSTATE CANCER
     Dosage: 22.5 MG EVERY 3 MONTHS
     Route: 030
     Dates: start: 20030430
  3. MICRONASE [Concomitant]
     Indication: DIABETES MELLITUS NON-INSULIN-DEPENDENT
     Dosage: 5 MG, QD
     Route: 048
  4. ACTOS [Concomitant]
     Indication: DIABETES MELLITUS NON-INSULIN-DEPENDENT
     Dosage: 15 MG, QD
     Route: 048
  5. LANOXIN [Concomitant]
     Indication: ARRHYTHMIA
     Dosage: 0.25 MG, QD
  6. DETROL [Concomitant]
     Indication: URGE INCONTINENCE
     Dosage: 4 MG, QD
     Route: 048
     Dates: start: 20040517
  7. COUMADIN [Concomitant]
     Indication: HEART VALVE REPLACEMENT
     Dosage: 2.5 MG, QD
     Route: 048

REACTIONS (14)
  - ANAEMIA [None]
  - BLOOD CREATININE INCREASED [None]
  - BLOOD GLUCOSE INCREASED [None]
  - BLOOD UREA INCREASED [None]
  - FATIGUE [None]
  - HAEMATOCRIT DECREASED [None]
  - HAEMOGLOBIN DECREASED [None]
  - MULTIPLE MYELOMA [None]
  - MYELODYSPLASTIC SYNDROME [None]
  - PALLOR [None]
  - PANCYTOPENIA [None]
  - PLATELET COUNT DECREASED [None]
  - RED BLOOD CELL COUNT DECREASED [None]
  - WHITE BLOOD CELL COUNT DECREASED [None]
